FAERS Safety Report 9849299 (Version 1)
Quarter: 2013Q4

REPORT INFORMATION
  Report Type: Spontaneous
  Country: US (occurrence: None)
  Receive Date: 20131223
  Receipt Date: 20131223
  Transmission Date: 20140711
  Serious: Yes (Death, Hospitalization, Other)
  Sender: FDA-Public Use
  Company Number: CABO-13003410

PATIENT
  Age: 51 Year
  Sex: Male

DRUGS (8)
  1. COMETRIQ [Suspect]
     Indication: GLIOBLASTOMA MULTIFORME
     Route: 048
     Dates: start: 20130701, end: 20130925
  2. AVASTIN (BEVACIZUMAB) [Concomitant]
  3. DEXAMETHASONE (DEXAMETHASONE) [Concomitant]
  4. LEVETIRACETAM (LEVETIRACETAM) [Concomitant]
  5. LISINOPRIL (LISINOPRIL) [Concomitant]
  6. METFORMIN (METFORMIN) [Concomitant]
  7. SIMVASTATIN (SIMVASTATIN) [Concomitant]
  8. MULTIVITAMIN (VITAMINS NOS) [Concomitant]

REACTIONS (3)
  - Respiratory failure [None]
  - Malignant neoplasm progression [None]
  - Off label use [None]
